FAERS Safety Report 5260806-6 (Version None)
Quarter: 2007Q1

REPORT INFORMATION
  Report Type: 
  Country: None (occurrence: None)
  Receive Date: 20061208
  Receipt Date: 20051109
  Transmission Date: 20070707
  Serious: No
  Sender: FDA-Public Use
  Company Number: 2005UW17021

PATIENT
  Age: 67 Year
  Sex: Female
  Weight: 70.306 kg

DRUGS (2)
  1. NEXIUM [Suspect]
     Indication: GASTRIC ULCER
     Dosage: 40 MG BID PO
     Route: 048
  2. TYLENOL EXTRA-STRENGTH [Concomitant]

REACTIONS (12)
  - ABDOMINAL PAIN [None]
  - BLOOD ALBUMIN [None]
  - CHEST PAIN [None]
  - DIARRHOEA [None]
  - FACE OEDEMA [None]
  - HAIR GROWTH ABNORMAL [None]
  - HEADACHE [None]
  - OEDEMA PERIPHERAL [None]
  - PAIN [None]
  - PAIN IN EXTREMITY [None]
  - TINNITUS [None]
  - WEIGHT INCREASED [None]
